APPROVED DRUG PRODUCT: BUTAPAP
Active Ingredient: ACETAMINOPHEN; BUTALBITAL
Strength: 325MG;50MG
Dosage Form/Route: TABLET;ORAL
Application: A089987 | Product #001 | TE Code: AA
Applicant: ANDA REPOSITORY LLC
Approved: Oct 26, 1992 | RLD: No | RS: Yes | Type: RX